FAERS Safety Report 4816120-3 (Version None)
Quarter: 2005Q4

REPORT INFORMATION
  Report Type: 
  Country: None (occurrence: None)
  Receive Date: 20051026
  Receipt Date: 20051018
  Transmission Date: 20060501
  Serious: Yes (Other)
  Sender: FDA-Public Use
  Company Number: 200514193BCC

PATIENT
  Age: 6 Year
  Sex: Male
  Weight: 54.4316 kg

DRUGS (1)
  1. ALEVE [Suspect]
     Dosage: TRANSPLACENTAL
     Route: 064
     Dates: start: 19950101

REACTIONS (2)
  - ATTENTION DEFICIT/HYPERACTIVITY DISORDER [None]
  - DRUG EXPOSURE DURING PREGNANCY [None]
